FAERS Safety Report 5724472-5 (Version None)
Quarter: 2008Q2

REPORT INFORMATION
  Report Type: 
  Country: None (occurrence: None)
  Receive Date: 20080429
  Receipt Date: 20080422
  Transmission Date: 20081010
  Serious: Yes (Hospitalization)
  Sender: FDA-Public Use
  Company Number: 2007SP024568

PATIENT
  Age: 56 Year
  Sex: Female

DRUGS (2)
  1. PEG-INTRON [Suspect]
     Indication: HEPATIC CIRRHOSIS
     Dosage: 100 MCG; QW; SC
     Route: 058
     Dates: start: 20070815
  2. REBETOL [Suspect]
     Indication: HEPATIC CIRRHOSIS
     Dosage: 600 MG; QD; PO
     Route: 048
     Dates: start: 20070815

REACTIONS (10)
  - DISSEMINATED INTRAVASCULAR COAGULATION [None]
  - GAIT DISTURBANCE [None]
  - GROIN PAIN [None]
  - HYPERTHERMIA [None]
  - INFLAMMATION [None]
  - MULTI-ORGAN FAILURE [None]
  - MUSCLE ABSCESS [None]
  - MYOSITIS [None]
  - PURULENT DISCHARGE [None]
  - STAPHYLOCOCCAL INFECTION [None]
